FAERS Safety Report 23996351 (Version 1)
Quarter: 2024Q2

REPORT INFORMATION
  Report Type: Spontaneous
  Country: GB (occurrence: GB)
  Receive Date: 20240620
  Receipt Date: 20240620
  Transmission Date: 20240715
  Serious: Yes (Other)
  Sender: FDA-Public Use
  Company Number: GB-MHRA-TPP44392465C22275880YC1718286836102

PATIENT
  Age: 70 Year
  Sex: Male
  Weight: 87 kg

DRUGS (11)
  1. SILDENAFIL [Suspect]
     Active Substance: SILDENAFIL
     Indication: Product used for unknown indication
     Dosage: 25 MILLIGRAM, TID (THREE TIMES A DAY)
     Route: 065
     Dates: start: 20240418
  2. ESOMEPRAZOLE [Concomitant]
     Active Substance: ESOMEPRAZOLE
     Dosage: UNK, BID (2 TIMES DAILY)
     Route: 065
     Dates: start: 20240208
  3. IBUPROFEN [Concomitant]
     Active Substance: IBUPROFEN
     Dosage: UNK (APPLY 3-4 TIMES/DAY)
     Route: 065
     Dates: start: 20240429, end: 20240513
  4. BECLOMETHASONE\FORMOTEROL [Concomitant]
     Active Substance: BECLOMETHASONE\FORMOTEROL
     Dosage: 2 DOSAGE FORM, BID (TAKE TWO DAILY)
     Route: 055
     Dates: start: 20231122
  5. GABAPENTIN [Concomitant]
     Active Substance: GABAPENTIN
     Dosage: 1 DOSAGE FORM, TID (ONE TO BE TAKEN THREE TIMES A DAY)
     Route: 065
     Dates: start: 20231122
  6. MONTELUKAST [Concomitant]
     Active Substance: MONTELUKAST SODIUM
     Indication: Ill-defined disorder
     Dosage: 1 DOSAGE FORM, QD (AT NIGHT)
     Route: 065
     Dates: start: 20231122
  7. NEFOPAM [Concomitant]
     Active Substance: NEFOPAM
     Indication: Ill-defined disorder
     Dosage: 3 DOSAGE FORM, TID (THREE TIMES ADAY)
     Route: 065
     Dates: start: 20231122
  8. ACETAMINOPHEN [Concomitant]
     Active Substance: ACETAMINOPHEN
     Indication: Ill-defined disorder
     Dosage: 2 DOSAGE FORM, QID (TWO TABLETS TO BE TAKEN UPTO FOUR TIMES DAILY)
     Route: 065
     Dates: start: 20231122
  9. POTASSIUM BICARBONATE\SODIUM ALGINATE [Concomitant]
     Active Substance: POTASSIUM BICARBONATE\SODIUM ALGINATE
     Dosage: UNK, TID (ONE OR TWO 5ML SPOONFULS TO BE TAKEN THREE TIME)
     Route: 065
     Dates: start: 20240129
  10. Diclomax [Concomitant]
     Dosage: 1 DOSAGE FORM, BID (TWO TIMES A DAY (WITH FOOD)
     Route: 065
     Dates: start: 20240301
  11. NIFEDIPINE [Concomitant]
     Active Substance: NIFEDIPINE
     Dosage: 1 DOSAGE FORM, TID (THREE TIMES A DAY)
     Route: 065
     Dates: start: 20240312, end: 20240611

REACTIONS (2)
  - Gastritis [Recovered/Resolved]
  - Salivary hypersecretion [Unknown]

NARRATIVE: CASE EVENT DATE: 20240529
